FAERS Safety Report 6565903-0 (Version None)
Quarter: 2010Q1

REPORT INFORMATION
  Report Type: 
  Country: None (occurrence: None)
  Receive Date: 20100127
  Receipt Date: 20100114
  Transmission Date: 20100710
  Serious: Yes (Hospitalization)
  Sender: FDA-Public Use
  Company Number: 1-21311784

PATIENT
  Age: 36 Year
  Sex: Male

DRUGS (1)
  1. WARFARIN SODIUM [Suspect]
     Indication: AORTIC VALVE REPLACEMENT
     Dosage: ORAL
     Route: 048

REACTIONS (11)
  - ABDOMINAL PAIN UPPER [None]
  - BACILLUS INFECTION [None]
  - CARDIAC MURMUR [None]
  - CEREBRAL ARTERY EMBOLISM [None]
  - ENDOCARDITIS [None]
  - INTERNATIONAL NORMALISED RATIO INCREASED [None]
  - PYREXIA [None]
  - SHOCK [None]
  - SPLENIC HAEMATOMA [None]
  - SPLENIC INFARCTION [None]
  - SPLENIC RUPTURE [None]
